FAERS Safety Report 13422147 (Version 1)
Quarter: 2017Q2

REPORT INFORMATION
  Report Type: Spontaneous
  Country: US (occurrence: US)
  Receive Date: 20170410
  Receipt Date: 20170410
  Transmission Date: 20170830
  Serious: Yes (Hospitalization, Other)
  Sender: FDA-Public Use
  Company Number: US-OREXIGEN THERAPEUTICS, INC.-1065195

PATIENT
  Sex: Female

DRUGS (3)
  1. CONTRAVE [Suspect]
     Active Substance: BUPROPION HYDROCHLORIDE\NALTREXONE HYDROCHLORIDE
     Indication: WEIGHT CONTROL
     Route: 065
     Dates: start: 20170324
  2. METHADONE [Concomitant]
     Active Substance: METHADONE HYDROCHLORIDE
     Route: 065
  3. PERCOCET [Concomitant]
     Active Substance: ACETAMINOPHEN\OXYCODONE HYDROCHLORIDE

REACTIONS (15)
  - Product use issue [Unknown]
  - Incontinence [Recovering/Resolving]
  - Vomiting [Recovering/Resolving]
  - Chills [Recovering/Resolving]
  - Dyskinesia [Recovering/Resolving]
  - Anxiety [Recovering/Resolving]
  - Palpitations [Recovering/Resolving]
  - Dyspnoea [Recovering/Resolving]
  - Contraindicated product administered [Unknown]
  - Drug interaction [Unknown]
  - Disorientation [Recovering/Resolving]
  - Pain [Recovering/Resolving]
  - Hyperhidrosis [Recovering/Resolving]
  - Hypoaesthesia [Recovering/Resolving]
  - Headache [Recovering/Resolving]

NARRATIVE: CASE EVENT DATE: 20170324
